FAERS Safety Report 6998585-4 (Version None)
Quarter: 2010Q3

REPORT INFORMATION
  Report Type: 
  Country: None (occurrence: None)
  Receive Date: 20100920
  Receipt Date: 20100111
  Transmission Date: 20110219
  Serious: No
  Sender: FDA-Public Use
  Company Number: US-ASTRAZENECA-2009SE19603

PATIENT
  Age: 20099 Day
  Sex: Female
  Weight: 73.5 kg

DRUGS (14)
  1. SEROQUEL [Suspect]
     Indication: BIPOLAR DISORDER
     Route: 048
     Dates: start: 20000101, end: 20071001
  2. SEROQUEL [Suspect]
     Dosage: 150-MG-200MG
     Route: 048
     Dates: start: 20030305
  3. LOVASTATIN [Concomitant]
     Indication: BLOOD CHOLESTEROL INCREASED
     Dates: start: 20080101
  4. LOVASTATIN [Concomitant]
     Indication: HYPERLIPIDAEMIA
     Dates: start: 20080101
  5. METFORMIN [Concomitant]
     Indication: HYPERGLYCAEMIA
     Dates: start: 20071001
  6. GEODON [Concomitant]
     Dates: start: 20080101
  7. RISPERDAL [Concomitant]
  8. ZYPREXA/SYMBYAX [Concomitant]
     Dates: start: 20031207
  9. DEPAKOTE [Concomitant]
  10. LITHIUM CARBONATE [Concomitant]
  11. ELAVIL [Concomitant]
     Dates: start: 20080225
  12. DARVOCET [Concomitant]
     Dosage: 1 TABLET EVERY 6 HOURS
  13. ZOLOFT [Concomitant]
     Route: 048
     Dates: start: 20041028
  14. TOPAMAX [Concomitant]
     Indication: BIPOLAR DISORDER
     Dosage: 50-200MG
     Route: 048
     Dates: start: 20040407

REACTIONS (2)
  - OBESITY [None]
  - TYPE 2 DIABETES MELLITUS [None]
